FAERS Safety Report 5845559-2 (Version None)
Quarter: 2008Q3

REPORT INFORMATION
  Report Type: 
  Country: None (occurrence: None)
  Receive Date: 20080814
  Receipt Date: 20080805
  Transmission Date: 20090109
  Serious: Yes (Other)
  Sender: FDA-Public Use
  Company Number: US-JNJCH-2008020693

PATIENT
  Age: 41 Year
  Sex: Male
  Weight: 63.5 kg

DRUGS (1)
  1. LISTERINE VANILLA MINT [Suspect]
     Indication: DENTAL DISORDER PROPHYLAXIS
     Dosage: TEXT:2 CAPFULS ONCE DAILY
     Route: 048
     Dates: start: 20080804, end: 20080805

REACTIONS (2)
  - BLISTER [None]
  - BURNING SENSATION [None]
